FAERS Safety Report 10154787 (Version 1)
Quarter: 2014Q2

REPORT INFORMATION
  Report Type: Spontaneous
  Country: BE (occurrence: BE)
  Receive Date: 20140506
  Receipt Date: 20140506
  Transmission Date: 20141212
  Serious: Yes (Death, Hospitalization, Other)
  Sender: FDA-Public Use
  Company Number: BE-ROXANE LABORATORIES, INC.-2014-RO-00698RO

PATIENT
  Age: 75 Year
  Sex: Female

DRUGS (12)
  1. LITHIUM CARBONATE [Suspect]
     Indication: BIPOLAR DISORDER
     Dosage: 1050 MG
     Route: 065
  2. NIMESULIDE [Suspect]
     Indication: PAIN
     Dosage: 100 MG
     Route: 065
  3. EFEXOR EXEL [Concomitant]
     Dosage: 225 MG
     Route: 065
  4. NESTROLAN [Concomitant]
     Dosage: 100 MG
     Route: 065
  5. CYMBALTA [Concomitant]
     Dosage: 60 MG
     Route: 065
  6. EMCONCOR [Concomitant]
     Dosage: 5 MG
     Route: 065
  7. SIMVASTATINE EG [Concomitant]
     Dosage: 20 MG
     Route: 065
  8. GLUCOPHAGE [Concomitant]
     Dosage: 2550 MG
     Route: 065
  9. PIRACETAM EG [Concomitant]
     Dosage: 1.2 G
     Route: 065
  10. XANAX [Concomitant]
     Dosage: 1 MG
     Route: 065
  11. IMOVANE [Concomitant]
     Dosage: 7.5 MG
     Route: 065
  12. TEMESTA [Concomitant]
     Dosage: 2.5 MG
     Route: 065

REACTIONS (3)
  - Cardiogenic shock [Fatal]
  - Toxicity to various agents [Recovered/Resolved]
  - Acute coronary syndrome [Unknown]
